FAERS Safety Report 23874107 (Version 1)
Quarter: 2024Q2

REPORT INFORMATION
  Report Type: Spontaneous
  Country: US (occurrence: US)
  Receive Date: 20240520
  Receipt Date: 20240520
  Transmission Date: 20240716
  Serious: No
  Sender: FDA-Public Use
  Company Number: US-CIPLA LTD.-2023US07111

PATIENT

DRUGS (2)
  1. ALBUTEROL [Suspect]
     Active Substance: ALBUTEROL
     Indication: Cough
     Dosage: 2 PUFFS, EVERY 6 HOURS AS NEEDED (PRN)
     Dates: start: 20231103
  2. ALBUTEROL [Suspect]
     Active Substance: ALBUTEROL
     Indication: Dyspnoea

REACTIONS (8)
  - Cough [Not Recovered/Not Resolved]
  - Feeling jittery [Unknown]
  - Device malfunction [Unknown]
  - Device delivery system issue [Unknown]
  - Product taste abnormal [Unknown]
  - Wrong technique in product usage process [Unknown]
  - Product cleaning inadequate [Unknown]
  - Product container seal issue [Unknown]

NARRATIVE: CASE EVENT DATE: 20231103
